FAERS Safety Report 13651635 (Version 1)
Quarter: 2017Q2

REPORT INFORMATION
  Report Type: Report from Study
  Country: AU (occurrence: AU)
  Receive Date: 20170614
  Receipt Date: 20170614
  Transmission Date: 20170830
  Serious: Yes (Death)
  Sender: FDA-Public Use
  Company Number: AU-ASTRAZENECA-2013SE54793

PATIENT
  Age: 85 Year
  Sex: Male

DRUGS (1)
  1. ZOLADEX [Suspect]
     Active Substance: GOSERELIN ACETATE
     Indication: PROSTATE CANCER
     Route: 058
     Dates: start: 20100101

REACTIONS (3)
  - Death [Fatal]
  - Nervousness [Unknown]
  - Chest pain [Unknown]

NARRATIVE: CASE EVENT DATE: 2010
